FAERS Safety Report 9035569 (Version 1)
Quarter: 2013Q1

REPORT INFORMATION
  Report Type: Spontaneous
  Country: US (occurrence: US)
  Receive Date: 20130128
  Receipt Date: 20130128
  Transmission Date: 20140127
  Serious: Yes (Death)
  Sender: FDA-Public Use
  Company Number: US-UCBSA-076114

PATIENT
  Age: 4 Year
  Sex: Female

DRUGS (2)
  1. TUSSIONEX [Suspect]
     Indication: CROUP INFECTIOUS
     Dosage: 1 HALF A TEASPOON ONCE A DAY
  2. BENADRYL [Suspect]

REACTIONS (2)
  - Toxicity to various agents [Fatal]
  - Drug level increased [Fatal]
